FAERS Safety Report 9622617 (Version 1)
Quarter: 2013Q4

REPORT INFORMATION
  Report Type: Spontaneous
  Country: US (occurrence: None)
  Receive Date: 20131010
  Receipt Date: 20131010
  Transmission Date: 20140711
  Serious: Yes (Hospitalization, Other)
  Sender: FDA-Public Use
  Company Number: 2013HINLIT0180

PATIENT
  Age: 40 Year
  Sex: Female

DRUGS (3)
  1. LITHIUM [Suspect]
     Indication: BIPOLAR DISORDER
  2. RINGER^S LACTATE (RINGR^S LACTATE) [Concomitant]
  3. AMILORIDE (AMILORIDED) [Concomitant]

REACTIONS (3)
  - Nephrogenic diabetes insipidus [None]
  - Hypernatraemia [None]
  - Delirium [None]
